FAERS Safety Report 5468658-6 (Version None)
Quarter: 2007Q3

REPORT INFORMATION
  Report Type: 
  Country: None (occurrence: None)
  Receive Date: 20070921
  Receipt Date: 20070911
  Transmission Date: 20080115
  Serious: Yes (Life-Threatening, Hospitalization)
  Sender: FDA-Public Use
  Company Number: 2007P1000648

PATIENT
  Age: 50 Year
  Sex: Male

DRUGS (9)
  1. BUSULFAN           (BUSULFAN) [Suspect]
     Indication: STEM CELL TRANSPLANT
     Dosage: 24.6 ML; QD; IV; 32.8 ML;QD;IV; 8.2 ML;QD;IV
     Route: 042
     Dates: start: 20061127, end: 20061127
  2. BUSULFAN           (BUSULFAN) [Suspect]
     Indication: STEM CELL TRANSPLANT
     Dosage: 24.6 ML; QD; IV; 32.8 ML;QD;IV; 8.2 ML;QD;IV
     Route: 042
     Dates: start: 20061128, end: 20061130
  3. BUSULFAN           (BUSULFAN) [Suspect]
     Indication: STEM CELL TRANSPLANT
     Dosage: 24.6 ML; QD; IV; 32.8 ML;QD;IV; 8.2 ML;QD;IV
     Route: 042
     Dates: start: 20061201, end: 20061201
  4. CYTARABINE [Concomitant]
  5. VALPROATE SODIUM [Concomitant]
  6. CYCLOPHOSPHAMIDE [Concomitant]
  7. NARTOGRASTIM [Concomitant]
  8. METHOTREXATE [Concomitant]
  9. TACROLIMUS [Concomitant]

REACTIONS (3)
  - BONE MARROW TRANSPLANT [None]
  - OEDEMA [None]
  - STAPHYLOCOCCAL SEPSIS [None]
